FAERS Safety Report 8360600-3 (Version None)
Quarter: 2012Q2

REPORT INFORMATION
  Report Type: 
  Country: None (occurrence: None)
  Receive Date: 20120515
  Receipt Date: 20120504
  Transmission Date: 20120825
  Serious: No
  Sender: FDA-Public Use
  Company Number: US-ASTRAZENECA-2012SE29295

PATIENT
  Age: 43 Year
  Sex: Female
  Weight: 115.2 kg

DRUGS (2)
  1. ATACAND [Suspect]
     Dosage: HIGHEST DOSES
     Route: 048
  2. TENORMIN [Suspect]
     Dosage: HIGHEST DOSES
     Route: 048

REACTIONS (11)
  - DIZZINESS [None]
  - DIABETES MELLITUS [None]
  - CHEST DISCOMFORT [None]
  - INTENTIONAL DRUG MISUSE [None]
  - HYPERTENSION [None]
  - DYSPNOEA [None]
  - DRY MOUTH [None]
  - FATIGUE [None]
  - FEELING JITTERY [None]
  - OBESITY [None]
  - GASTROOESOPHAGEAL REFLUX DISEASE [None]
